FAERS Safety Report 19655558 (Version 3)
Quarter: 2021Q4

REPORT INFORMATION
  Report Type: Report from Study
  Country: US (occurrence: US)
  Receive Date: 20210804
  Receipt Date: 20211006
  Transmission Date: 20220303
  Serious: Yes (Other)
  Sender: FDA-Public Use
  Company Number: NVSC2021US167264

PATIENT
  Sex: Male

DRUGS (2)
  1. KESIMPTA [Suspect]
     Active Substance: OFATUMUMAB
     Indication: Relapsing-remitting multiple sclerosis
     Dosage: 20 MG,QMO(BENEATH THE SKIN VIA INJECTION)
     Route: 058
  2. KESIMPTA [Suspect]
     Active Substance: OFATUMUMAB
     Dosage: 20MG/0.4ML
     Route: 065

REACTIONS (4)
  - Blindness [Unknown]
  - Visual impairment [Unknown]
  - Pain [Recovering/Resolving]
  - Product storage error [Unknown]
